FAERS Safety Report 7164052-0 (Version None)
Quarter: 2010Q4

REPORT INFORMATION
  Report Type: 
  Country: None (occurrence: None)
  Receive Date: 20101215
  Receipt Date: 20101208
  Transmission Date: 20110411
  Serious: Yes (Other)
  Sender: FDA-Public Use
  Company Number: B0689268A

PATIENT
  Age: 77 Year
  Sex: Female

DRUGS (3)
  1. ARIXTRA [Suspect]
  2. ASPIRIN [Concomitant]
  3. GLYCERYL TRINITRATE [Concomitant]

REACTIONS (2)
  - HAEMORRHAGE INTRACRANIAL [None]
  - MUSCULAR WEAKNESS [None]
